FAERS Safety Report 9586565 (Version 2)
Quarter: 2013Q4

REPORT INFORMATION
  Report Type: Report from Study
  Country: DE (occurrence: DE)
  Receive Date: 20131003
  Receipt Date: 20131003
  Transmission Date: 20140711
  Serious: Yes (Hospitalization)
  Sender: FDA-Public Use
  Company Number: DE-ASTELLAS-2011EU004682

PATIENT
  Age: 47 Year
  Sex: Female
  Weight: 85 kg

DRUGS (6)
  1. TACROLIMUS MR4 CAPSULES [Suspect]
     Indication: RENAL TRANSPLANT
     Dosage: 4 MG, UID/QD
     Route: 048
     Dates: start: 20110220
  2. MYCOPHENOLATE MOFETIL [Suspect]
     Indication: RENAL TRANSPLANT
     Dosage: 1000 MG, BID
     Route: 048
     Dates: start: 20110220
  3. MYCOPHENOLATE MOFETIL [Suspect]
     Dosage: 250 MG, BID
     Route: 048
     Dates: start: 20120229
  4. MYCOPHENOLATE MOFETIL [Suspect]
     Dosage: 500 MG, BID
     Route: 048
     Dates: start: 20120322
  5. BASILIXIMAB [Suspect]
     Indication: RENAL TRANSPLANT
     Dosage: 20 MG, UID/QD
     Route: 042
     Dates: start: 20110220
  6. PREDNISOLONE [Suspect]
     Indication: RENAL TRANSPLANT
     Dosage: UNK
     Route: 048
     Dates: start: 20110220

REACTIONS (3)
  - Urinary tract infection [Recovered/Resolved]
  - Urinary tract infection [Recovered/Resolved]
  - Nephritis [Recovered/Resolved]
